FAERS Safety Report 13355740 (Version 2)
Quarter: 2017Q2

REPORT INFORMATION
  Report Type: Spontaneous
  Country: RU (occurrence: RU)
  Receive Date: 20170321
  Receipt Date: 20170601
  Transmission Date: 20170830
  Serious: Yes (Hospitalization, Other)
  Sender: FDA-Public Use
  Company Number: RU-ASTRAZENECA-2017SE29216

PATIENT
  Age: 576 Day
  Sex: Male
  Weight: 12 kg

DRUGS (5)
  1. AMOKSIKLAV [Concomitant]
     Active Substance: AMOXICILLIN\CLAVULANATE POTASSIUM
     Route: 042
  2. VANCOMYCIN [Concomitant]
     Active Substance: VANCOMYCIN
  3. AMIKACIN [Concomitant]
     Active Substance: AMIKACIN
     Route: 042
  4. MERONEM [Suspect]
     Active Substance: MEROPENEM
     Indication: PNEUMONIA PNEUMOCOCCAL
     Dosage: 100 ML 0.9% NORMAL, THREE TIMES A DAY
     Route: 042
     Dates: start: 20161225
  5. AMBROXOL [Concomitant]
     Active Substance: AMBROXOL
     Indication: SUPPLEMENTATION THERAPY
     Route: 042

REACTIONS (5)
  - Drug ineffective [Recovered/Resolved]
  - Sepsis [Recovered/Resolved]
  - Thrombocytopenia [Recovered/Resolved]
  - Anaemia [Recovered/Resolved]
  - Poisoning [Recovered/Resolved]

NARRATIVE: CASE EVENT DATE: 20161226
